FAERS Safety Report 5796316-7 (Version None)
Quarter: 2008Q2

REPORT INFORMATION
  Report Type: 
  Country: None (occurrence: None)
  Receive Date: 20080630
  Receipt Date: 20080630
  Transmission Date: 20081010
  Serious: Yes (Disabling)
  Sender: FDA-Public Use
  Company Number: None

PATIENT
  Sex: Female
  Weight: 58.9676 kg

DRUGS (2)
  1. ADDERALL XR 25 [Suspect]
     Indication: ATTENTION DEFICIT/HYPERACTIVITY DISORDER
     Dosage: 1 CAPSULE DAILY
     Dates: start: 20030810, end: 20070709
  2. ADDERALL 10 [Suspect]
     Indication: ATTENTION DEFICIT/HYPERACTIVITY DISORDER
     Dosage: 1 TABLET DAILY
     Dates: start: 20030810, end: 20070709

REACTIONS (8)
  - CHEST PAIN [None]
  - DISTURBANCE IN ATTENTION [None]
  - DYSPHEMIA [None]
  - HEADACHE [None]
  - HEART RATE INCREASED [None]
  - MEMORY IMPAIRMENT [None]
  - PARANOIA [None]
  - THINKING ABNORMAL [None]
